FAERS Safety Report 7416521-3 (Version None)
Quarter: 2011Q2

REPORT INFORMATION
  Report Type: 
  Country: None (occurrence: None)
  Receive Date: 20110414
  Receipt Date: 20110404
  Transmission Date: 20111010
  Serious: Yes (Death, Hospitalization)
  Sender: FDA-Public Use
  Company Number: IT-MPIJNJ-2011-01397

PATIENT

DRUGS (3)
  1. VELCADE [Suspect]
     Indication: LEUKAEMIA PLASMACYTIC
     Dosage: UNK
     Dates: start: 20080101, end: 20080101
  2. DEXAMETHASONE [Suspect]
     Indication: LEUKAEMIA PLASMACYTIC
     Dosage: UNK
     Dates: start: 20080101, end: 20080101
  3. DOXORUBICIN [Suspect]
     Indication: LEUKAEMIA PLASMACYTIC
     Dosage: UNK
     Dates: start: 20080101, end: 20080101

REACTIONS (3)
  - DISEASE PROGRESSION [None]
  - MALIGNANT ASCITES [None]
  - RENAL IMPAIRMENT [None]
